FAERS Safety Report 8564122-6 (Version None)
Quarter: 2012Q3

REPORT INFORMATION
  Report Type: 
  Country: None (occurrence: None)
  Receive Date: 20120803
  Receipt Date: 20120608
  Transmission Date: 20120928
  Serious: No
  Sender: FDA-Public Use
  Company Number: US-009507513-2012SP031878

PATIENT

DRUGS (5)
  1. DULERA [Suspect]
     Dosage: 100 MICROGRAM, UNK
     Route: 055
     Dates: start: 20120507
  2. ALLEGRA [Concomitant]
     Dosage: OIN/ALLEGRA
  3. METOPROLOL TARTRATE [Concomitant]
     Dosage: XR
  4. NITROFURANT [Concomitant]
  5. SYNTHROID [Concomitant]

REACTIONS (2)
  - MYALGIA [None]
  - MUSCLE SPASMS [None]
